FAERS Safety Report 11321794 (Version 1)
Quarter: 2015Q3

REPORT INFORMATION
  Report Type: Spontaneous
  Country: JP (occurrence: JP)
  Receive Date: 20150729
  Receipt Date: 20150729
  Transmission Date: 20151125
  Serious: Yes (Hospitalization)
  Sender: FDA-Public Use
  Company Number: PHHY2015JP087537

PATIENT
  Age: 12 Year
  Sex: Female

DRUGS (3)
  1. TACROLIMUS. [Suspect]
     Active Substance: TACROLIMUS
     Indication: VARICELLA ZOSTER VIRUS INFECTION
     Route: 065
  2. METHYLPREDNISOLONE. [Suspect]
     Active Substance: METHYLPREDNISOLONE
     Indication: VARICELLA ZOSTER VIRUS INFECTION
     Route: 065
  3. MYCOPHENOLATE MOFETIL. [Suspect]
     Active Substance: MYCOPHENOLATE MOFETIL
     Indication: VARICELLA ZOSTER VIRUS INFECTION
     Route: 065

REACTIONS (10)
  - Varicella zoster virus infection [Recovered/Resolved]
  - Neutropenia [Recovered/Resolved]
  - Generalised tonic-clonic seizure [Recovered/Resolved]
  - Disseminated intravascular coagulation [Recovered/Resolved]
  - Cytomegalovirus viraemia [Recovered/Resolved]
  - Liver injury [Recovered/Resolved]
  - Back pain [Recovered/Resolved]
  - Rash vesicular [Recovered/Resolved]
  - Pyrexia [Recovered/Resolved]
  - Pneumonia [Recovered/Resolved]
